FAERS Safety Report 9106218 (Version 3)
Quarter: 2013Q2

REPORT INFORMATION
  Report Type: Spontaneous
  Country: IT (occurrence: IT)
  Receive Date: 20130221
  Receipt Date: 20130605
  Transmission Date: 20140414
  Serious: Yes (Other)
  Sender: FDA-Public Use
  Company Number: IT-TEVA-387711USA

PATIENT
  Age: 26 Year
  Sex: Female

DRUGS (4)
  1. LEVACT [Suspect]
     Indication: HODGKIN^S DISEASE
     Route: 042
  2. LEVACT [Suspect]
     Route: 042
  3. RITUXIMAB [Suspect]
     Indication: HODGKIN^S DISEASE
  4. RITUXIMAB [Suspect]

REACTIONS (2)
  - Hepatotoxicity [Unknown]
  - Off label use [Unknown]
